FAERS Safety Report 8780244 (Version 1)
Quarter: 2012Q4

REPORT INFORMATION
  Report Type: 
  Country: US (occurrence: None)
  Receive Date: 20120904
  Receipt Date: 20120904
  Transmission Date: 20130627
  Serious: Yes (Hospitalization)
  Sender: FDA-Public Use
  Company Number: None

PATIENT
  Sex: Male
  Weight: 77.35 kg

DRUGS (1)
  1. CETUXIMAB [Suspect]
     Dosage: course = cycle 5

REACTIONS (4)
  - Dehydration [None]
  - Oral pain [None]
  - Weight decreased [None]
  - Device intolerance [None]
